FAERS Safety Report 8056848-8 (Version None)
Quarter: 2012Q1

REPORT INFORMATION
  Report Type: 
  Country: None (occurrence: None)
  Receive Date: 20120119
  Receipt Date: 20120104
  Transmission Date: 20120608
  Serious: Yes (Death)
  Sender: FDA-Public Use
  Company Number: US-ENDO PHARMACEUTICALS INC.-OPIR20120002

PATIENT
  Age: 43 Year
  Sex: Male

DRUGS (2)
  1. OPANA [Suspect]
     Indication: DRUG DIVERSION
     Dosage: N/A
  2. OXYCODONE HCL [Suspect]
     Indication: DRUG DIVERSION
     Dosage: N/A

REACTIONS (1)
  - DRUG DIVERSION [None]
